FAERS Safety Report 25330490 (Version 2)
Quarter: 2025Q2

REPORT INFORMATION
  Report Type: Spontaneous
  Country: TH (occurrence: TH)
  Receive Date: 20250519
  Receipt Date: 20250522
  Transmission Date: 20250717
  Serious: Yes (Life-Threatening, Hospitalization)
  Sender: TEVA
  Company Number: TH-TEVA-VS-3331759

PATIENT
  Age: 62 Year
  Sex: Female

DRUGS (4)
  1. DOXORUBICIN [Suspect]
     Active Substance: DOXORUBICIN
     Indication: Osteosarcoma
     Route: 065
  2. CISPLATIN [Suspect]
     Active Substance: CISPLATIN
     Indication: Osteosarcoma
     Route: 065
  3. DEXAMETHASONE [Suspect]
     Active Substance: DEXAMETHASONE
     Indication: Osteosarcoma
     Route: 065
  4. PIPERACILLIN AND TAZOBACTAM [Concomitant]
     Active Substance: PIPERACILLIN SODIUM\TAZOBACTAM SODIUM
     Indication: Evidence based treatment
     Route: 065

REACTIONS (7)
  - Diarrhoea [Recovering/Resolving]
  - Herpes simplex [Recovered/Resolved]
  - Nausea [Recovering/Resolving]
  - Stomatitis [Recovering/Resolving]
  - Vomiting [Recovering/Resolving]
  - Pneumonitis [Recovering/Resolving]
  - Enterocolitis [Recovering/Resolving]
